FAERS Safety Report 16374895 (Version 5)
Quarter: 2019Q4

REPORT INFORMATION
  Report Type: Spontaneous
  Country: CA (occurrence: CA)
  Receive Date: 20190531
  Receipt Date: 20191004
  Transmission Date: 20200122
  Serious: Yes (Hospitalization, Other)
  Sender: FDA-Public Use
  Company Number: CA-CELLTRION INC.-2019CA020990

PATIENT

DRUGS (8)
  1. INFLECTRA [Suspect]
     Active Substance: INFLIXIMAB-DYYB
     Dosage: 500 MG, (RESCUE DOSE)
     Route: 042
     Dates: start: 20190515, end: 20190515
  2. INFLECTRA [Suspect]
     Active Substance: INFLIXIMAB-DYYB
     Dosage: 500 MG (10 MG/KG), AT WEEK 0, 2, 6, THEN EVERY 8 WEEK
     Route: 042
     Dates: start: 20190328
  3. INFLECTRA [Suspect]
     Active Substance: INFLIXIMAB-DYYB
     Dosage: 500 MG (10 MG/KG), AT WEEK 0, 2, 6, THEN EVERY 8 WEEK
     Route: 042
     Dates: start: 20190425
  4. PREDNISONE. [Concomitant]
     Active Substance: PREDNISONE
     Dosage: 40 MG,TAPERING DOSE
     Route: 065
     Dates: start: 20190418
  5. INFLECTRA [Suspect]
     Active Substance: INFLIXIMAB-DYYB
     Dosage: 500 MG, (RESCUE DOSE)
     Route: 042
     Dates: start: 20190515, end: 20190515
  6. INFLECTRA [Suspect]
     Active Substance: INFLIXIMAB-DYYB
     Dosage: 500 MG, (RESCUE DOSE)
     Route: 042
     Dates: start: 20190515
  7. PREDNISONE. [Concomitant]
     Active Substance: PREDNISONE
     Indication: CROHN^S DISEASE
     Dosage: 40-60 MG, DAILY WITH TAPERING DOSE FOR A MINIMUM OF 14 DAYS
     Route: 065
     Dates: start: 20190418
  8. INFLECTRA [Suspect]
     Active Substance: INFLIXIMAB-DYYB
     Indication: CROHN^S DISEASE
     Dosage: 500 MG (10 MG/KG), AT WEEK 0, 2, 6, THEN EVERY 8 WEEK
     Route: 042
     Dates: start: 20190318

REACTIONS (10)
  - Condition aggravated [Unknown]
  - Aphthous ulcer [Unknown]
  - Product use issue [Unknown]
  - Pain [Unknown]
  - Product use issue [Unknown]
  - Product use issue [Unknown]
  - Gastrointestinal disorder [Unknown]
  - Off label use [Unknown]
  - Therapeutic product effect incomplete [Unknown]
  - Bone pain [Unknown]

NARRATIVE: CASE EVENT DATE: 20190328
